FAERS Safety Report 8233475-0 (Version None)
Quarter: 2012Q1

REPORT INFORMATION
  Report Type: 
  Country: None (occurrence: None)
  Receive Date: 20120326
  Receipt Date: 20120316
  Transmission Date: 20120608
  Serious: Yes (Other)
  Sender: FDA-Public Use
  Company Number: US-US-EMD SERONO, INC.-7065263

PATIENT
  Sex: Female
  Weight: 50 kg

DRUGS (4)
  1. DILAUDID [Concomitant]
     Indication: HEADACHE
  2. OMEPRAZOLE [Concomitant]
  3. REBIF [Suspect]
     Indication: MULTIPLE SCLEROSIS
     Dates: start: 20080101, end: 20110425
  4. REBIF [Suspect]
     Dates: start: 20110927, end: 20120101

REACTIONS (4)
  - EXOSTOSIS [None]
  - VEIN DISORDER [None]
  - SKIN INDURATION [None]
  - OEDEMA PERIPHERAL [None]
